FAERS Safety Report 5025679-5 (Version None)
Quarter: 2006Q2

REPORT INFORMATION
  Report Type: 
  Country: None (occurrence: None)
  Receive Date: 20060614
  Receipt Date: 20060602
  Transmission Date: 20061013
  Serious: Yes (Hospitalization)
  Sender: FDA-Public Use
  Company Number: US-JNJFOC-20060601126

PATIENT
  Sex: Female
  Weight: 103.42 kg

DRUGS (4)
  1. ORTHO EVRA [Suspect]
     Indication: DRUG USE FOR UNKNOWN INDICATION
     Route: 062
  2. BACTRIM [Concomitant]
  3. BACTRIM [Concomitant]
  4. DOXYCYCLINE [Concomitant]

REACTIONS (10)
  - CELLULITIS [None]
  - CHILLS [None]
  - DEEP VEIN THROMBOSIS [None]
  - FURUNCLE [None]
  - HYPOAESTHESIA [None]
  - IMMOBILE [None]
  - OEDEMA PERIPHERAL [None]
  - PAIN IN EXTREMITY [None]
  - PARAESTHESIA [None]
  - STAPHYLOCOCCAL INFECTION [None]
